FAERS Safety Report 5718123-3 (Version None)
Quarter: 2008Q2

REPORT INFORMATION
  Report Type: 
  Country: None (occurrence: None)
  Receive Date: 20080425
  Receipt Date: 20080416
  Transmission Date: 20081010
  Serious: Yes (Other)
  Sender: FDA-Public Use
  Company Number: US-SOLVAY-00208000563

PATIENT
  Age: 61 Year
  Sex: Male
  Weight: 78.5 kg

DRUGS (3)
  1. GLIPIZIDE [Concomitant]
     Indication: DIABETES MELLITUS
     Dosage: DAILY DOSE: 10 MILLIGRAM(S)
     Route: 048
  2. ANDROGEL [Suspect]
     Indication: ERECTILE DYSFUNCTION
     Dosage: DAILY DOSE: USED ON WEEKENDS PRN
     Route: 062
     Dates: start: 20050517, end: 20060901
  3. VIAGRA [Suspect]
     Indication: ILL-DEFINED DISORDER
     Dosage: DAILY DOSE:  UNKNOWN
     Route: 048
     Dates: start: 20060901

REACTIONS (3)
  - CORONARY ARTERY DISEASE [None]
  - HOT FLUSH [None]
  - ROAD TRAFFIC ACCIDENT [None]
